FAERS Safety Report 4597124-5 (Version None)
Quarter: 2005Q1

REPORT INFORMATION
  Report Type: 
  Country: None (occurrence: None)
  Receive Date: 20050301
  Receipt Date: 20050216
  Transmission Date: 20050727
  Serious: Yes (Hospitalization)
  Sender: FDA-Public Use
  Company Number: 2004206945NO

PATIENT
  Age: 86 Year
  Sex: Female

DRUGS (1)
  1. LATANOPROST [Suspect]
     Indication: GLAUCOMA
     Dosage: OPHTHALMIC
     Route: 047
     Dates: start: 20030101, end: 20040101

REACTIONS (12)
  - EYE IRRITATION [None]
  - EYE PAIN [None]
  - FEMORAL NECK FRACTURE [None]
  - LACRIMATION INCREASED [None]
  - PAIN [None]
  - PARAESTHESIA [None]
  - PERIORBITAL DISORDER [None]
  - RETINITIS PIGMENTOSA [None]
  - SKIN LESION [None]
  - SYNCOPE [None]
  - VISUAL ACUITY REDUCED [None]
  - VISUAL DISTURBANCE [None]
